FAERS Safety Report 10447692 (Version 1)
Quarter: 2014Q3

REPORT INFORMATION
  Report Type: Spontaneous
  Country: IL (occurrence: IL)
  Receive Date: 20140911
  Receipt Date: 20140911
  Transmission Date: 20150326
  Serious: Yes (Other)
  Sender: FDA-Public Use
  Company Number: IL-BAYER-2014-134033

PATIENT
  Age: 30 Year
  Sex: Female

DRUGS (1)
  1. QLAIR [Suspect]
     Active Substance: DIENOGEST\ESTRADIOL VALERATE
     Dosage: UNK
     Route: 048

REACTIONS (3)
  - Ectopic pregnancy under hormonal contraception [Recovered/Resolved]
  - Vaginal discharge [None]
  - Drug ineffective [None]

NARRATIVE: CASE EVENT DATE: 2014
